FAERS Safety Report 6403072-8 (Version None)
Quarter: 2009Q4

REPORT INFORMATION
  Report Type: 
  Country: None (occurrence: None)
  Receive Date: 20091016
  Receipt Date: 20090922
  Transmission Date: 20100525
  Serious: No
  Sender: FDA-Public Use
  Company Number: US-BAYER-200933017NA

PATIENT
  Sex: Male

DRUGS (2)
  1. LEVITRA [Suspect]
     Indication: DRUG USE FOR UNKNOWN INDICATION
     Dosage: UNIT DOSE: 10 MG
     Dates: start: 20090101
  2. LEVITRA [Suspect]
     Dosage: UNIT DOSE: 10 MG
     Dates: start: 20090801

REACTIONS (1)
  - ADVERSE EVENT [None]
